FAERS Safety Report 9597746 (Version 3)
Quarter: 2014Q2

REPORT INFORMATION
  Report Type: Spontaneous
  Country: US (occurrence: US)
  Receive Date: 20131004
  Receipt Date: 20140424
  Transmission Date: 20141212
  Serious: Yes (Hospitalization, Other)
  Sender: FDA-Public Use
  Company Number: US-AMGEN-USASP2013018153

PATIENT
  Age: 66 Year
  Sex: Female
  Weight: 131.5 kg

DRUGS (2)
  1. ENBREL [Suspect]
     Indication: PSORIASIS
     Dosage: 50 MG, QWK
     Route: 065
     Dates: start: 20130212
  2. ENBREL [Suspect]
     Dosage: UNK
     Route: 065

REACTIONS (4)
  - Haemoglobin decreased [Recovered/Resolved]
  - Colon cancer [Recovered/Resolved]
  - Dyspnoea [Recovered/Resolved]
  - Psoriasis [Not Recovered/Not Resolved]
